FAERS Safety Report 7653899-X (Version None)
Quarter: 2011Q3

REPORT INFORMATION
  Report Type: 
  Country: None (occurrence: None)
  Receive Date: 20110803
  Receipt Date: 20110722
  Transmission Date: 20111222
  Serious: Yes (Other)
  Sender: FDA-Public Use
  Company Number: CH-EISAI INC-E2020-08998-SPO-CH

PATIENT
  Sex: Male

DRUGS (2)
  1. ARICEPT [Suspect]
     Route: 048
  2. ARICEPT [Suspect]
     Indication: DEMENTIA
     Route: 048

REACTIONS (4)
  - VOLVULUS [None]
  - DIARRHOEA [None]
  - DYSPEPSIA [None]
  - LARGE INTESTINE PERFORATION [None]
